FAERS Safety Report 6454083-8 (Version None)
Quarter: 2009Q4

REPORT INFORMATION
  Report Type: 
  Country: None (occurrence: None)
  Receive Date: 20091124
  Receipt Date: 20091118
  Transmission Date: 20100525
  Serious: Yes (Death)
  Sender: FDA-Public Use
  Company Number: B0606920A

PATIENT
  Sex: Male

DRUGS (3)
  1. ARIXTRA [Suspect]
     Dosage: 2.5MGML PER DAY
     Route: 065
     Dates: start: 20091101, end: 20091101
  2. ANTIBIOTICS [Concomitant]
     Route: 065
  3. ANTI-HYPERTENSIVE [Concomitant]
     Route: 065

REACTIONS (1)
  - PULMONARY EMBOLISM [None]
